FAERS Safety Report 7360994 (Version 2)
Quarter: 2013Q2

REPORT INFORMATION
  Report Type: Spontaneous
  Country: US (occurrence: None)
  Receive Date: 20100406
  Receipt Date: 20130402
  Transmission Date: 20140414
  Serious: Yes (Hospitalization, Other)
  Sender: FDA-Public Use
  Company Number: AUR-APL-2010-00849

PATIENT
  Age: 55 Year
  Sex: Female
  Weight: 91.4 kg

DRUGS (4)
  1. FLUOXETINE (FLUOXETINE) [Suspect]
     Indication: SUICIDE ATTEMPT
     Route: 048
  2. ZIPRASIDONE HCL [Suspect]
     Indication: SUICIDE ATTEMPT
     Dosage: 40 MG (150 DF) UNKNOWN, ORAL
     Route: 048
  3. BENZTROPINE MESYLATE [Suspect]
     Indication: SUICIDE ATTEMPT
     Route: 048
  4. TRAZODONE HCL [Suspect]
     Indication: SUICIDE ATTEMPT
     Route: 048

REACTIONS (16)
  - Suicide attempt [None]
  - Cognitive disorder [None]
  - Overdose [None]
  - Nausea [None]
  - Vomiting [None]
  - Malaise [None]
  - Flushing [None]
  - Skin warm [None]
  - Mydriasis [None]
  - Dry mouth [None]
  - Electrocardiogram QT prolonged [None]
  - Ventricular fibrillation [None]
  - Torsade de pointes [None]
  - Blood magnesium decreased [None]
  - Blood phosphorus decreased [None]
  - Blood thyroid stimulating hormone increased [None]
